FAERS Safety Report 18266388 (Version 1)
Quarter: 2020Q3

REPORT INFORMATION
  Report Type: Spontaneous
  Country: NL (occurrence: NL)
  Receive Date: 20200915
  Receipt Date: 20200915
  Transmission Date: 20201103
  Serious: Yes (Other)
  Sender: FDA-Public Use
  Company Number: NL-ACCORD-200829

PATIENT

DRUGS (4)
  1. ARCOXIA [Suspect]
     Active Substance: ETORICOXIB
     Indication: PRODUCT USED FOR UNKNOWN INDICATION
     Dosage: STRENGTH?30 MG
  2. LISINOPRIL. [Suspect]
     Active Substance: LISINOPRIL
     Indication: PRODUCT USED FOR UNKNOWN INDICATION
     Dosage: STRENGTH?5 MG
  3. LEVOCETIRIZINE [Suspect]
     Active Substance: LEVOCETIRIZINE
     Indication: PRODUCT USED FOR UNKNOWN INDICATION
     Dosage: FO 5 MG
  4. PANADOL PLUS [Suspect]
     Active Substance: ACETAMINOPHEN\CAFFEINE
     Indication: PRODUCT USED FOR UNKNOWN INDICATION
     Dosage: STRENGTH?500/65MG, SMOOTH TABLET

REACTIONS (11)
  - Vomiting [Unknown]
  - Oedema [Unknown]
  - Micturition disorder [Unknown]
  - Fatigue [Unknown]
  - Type III immune complex mediated reaction [Unknown]
  - Musculoskeletal stiffness [Unknown]
  - Nausea [Unknown]
  - Skin disorder [Unknown]
  - Type I hypersensitivity [Unknown]
  - Rash [Unknown]
  - Urticaria [Unknown]
